FAERS Safety Report 13717209 (Version 1)
Quarter: 2017Q3

REPORT INFORMATION
  Report Type: Other
  Country: DE (occurrence: DE)
  Receive Date: 20170705
  Receipt Date: 20170705
  Transmission Date: 20171127
  Serious: Yes (Hospitalization)
  Sender: FDA-Public Use
  Company Number: DE-PIRAMAL ENTERPRISES LIMITED-2017-PEL-000770

PATIENT

DRUGS (1)
  1. ISOFLURAN PIRAMAL [Suspect]
     Active Substance: ISOFLURANE
     Indication: SEDATION
     Dosage: END TIDAL CONCENTRATION OF AN AVERAGE OF 1.0% BY VOLUME

REACTIONS (1)
  - Nuclear magnetic resonance imaging brain abnormal [Recovered/Resolved]

NARRATIVE: CASE EVENT DATE: 201508
